FAERS Safety Report 15190672 (Version 1)
Quarter: 2018Q3

REPORT INFORMATION
  Report Type: Spontaneous
  Country: AT (occurrence: AT)
  Receive Date: 20180724
  Receipt Date: 20180724
  Transmission Date: 20181010
  Serious: Yes (Death, Hospitalization)
  Sender: FDA-Public Use
  Company Number: AT-PFIZER INC-2018295443

PATIENT
  Age: 86 Year
  Sex: Female

DRUGS (1)
  1. METHOTREXATE SODIUM. [Suspect]
     Active Substance: METHOTREXATE SODIUM
     Dosage: 10 MG, DAILY
     Route: 048

REACTIONS (8)
  - Renal failure [Unknown]
  - Pyrexia [Unknown]
  - Pancytopenia [Unknown]
  - Nausea [Unknown]
  - Overdose [Fatal]
  - Hepatic enzyme increased [Unknown]
  - Toxicity to various agents [Fatal]
  - Vertigo [Unknown]
